FAERS Safety Report 12975401 (Version 1)
Quarter: 2016Q4

REPORT INFORMATION
  Report Type: Spontaneous
  Country: US (occurrence: US)
  Receive Date: 20161122
  Receipt Date: 20161122
  Transmission Date: 20170207
  Serious: Yes (Hospitalization)
  Sender: FDA-Public Use
  Company Number: None

PATIENT
  Age: 74 Year
  Sex: Female
  Weight: 65.4 kg

DRUGS (1)
  1. DOXIL [Suspect]
     Active Substance: DOXORUBICIN HYDROCHLORIDE
     Dates: end: 20161018

REACTIONS (5)
  - Nausea [None]
  - Abdominal pain [None]
  - Diarrhoea [None]
  - Eructation [None]
  - Vomiting [None]

NARRATIVE: CASE EVENT DATE: 20161113
